FAERS Safety Report 10252643 (Version 1)
Quarter: 2014Q2

REPORT INFORMATION
  Report Type: Spontaneous
  Country: US (occurrence: None)
  Receive Date: 20140620
  Receipt Date: 20140620
  Transmission Date: 20141212
  Serious: No
  Sender: FDA-Public Use
  Company Number: None

PATIENT
  Sex: Female
  Weight: 86.18 kg

DRUGS (1)
  1. PHENYTOIN [Suspect]
     Indication: CONVULSION
     Dosage: 100MG, 3 TAB QHS., PO
     Route: 048
     Dates: start: 2011

REACTIONS (4)
  - Product substitution issue [None]
  - Convulsion [None]
  - Drug intolerance [None]
  - Condition aggravated [None]
